FAERS Safety Report 24947454 (Version 3)
Quarter: 2025Q1

REPORT INFORMATION
  Report Type: Spontaneous
  Country: US (occurrence: US)
  Receive Date: 20250210
  Receipt Date: 20250314
  Transmission Date: 20250409
  Serious: No
  Sender: BAUSCH AND LOMB
  Company Number: US-BAUSCHBL-2025BNL001638

PATIENT
  Age: 70 Year
  Sex: Male
  Weight: 90 kg

DRUGS (1)
  1. XIIDRA [Suspect]
     Active Substance: LIFITEGRAST
     Indication: Dry eye
     Dosage: 1 DROP IN EACH EYE 2 TIMES DAILY
     Route: 047
     Dates: start: 202412

REACTIONS (16)
  - Oropharyngeal pain [Unknown]
  - Pruritus [Unknown]
  - Burning sensation [Unknown]
  - Vision blurred [Unknown]
  - Dysgeusia [Unknown]
  - Product after taste [Unknown]
  - Accidental exposure to product [Unknown]
  - Exposure via skin contact [Unknown]
  - Patient dissatisfaction with treatment [Unknown]
  - Wrong dose [Unknown]
  - Product delivery mechanism issue [Unknown]
  - Wrong technique in product usage process [Unknown]
  - Product packaging difficult to open [Unknown]
  - Liquid product physical issue [Unknown]
  - Product use complaint [Unknown]
  - Product deposit [Unknown]

NARRATIVE: CASE EVENT DATE: 20241201
